FAERS Safety Report 8997307 (Version 2)
Quarter: 2013Q1

REPORT INFORMATION
  Report Type: Spontaneous
  Country: US (occurrence: US)
  Receive Date: 20130104
  Receipt Date: 20130301
  Transmission Date: 20140127
  Serious: No
  Sender: FDA-Public Use
  Company Number: US-009507513-1301USA000464

PATIENT
  Sex: Female
  Weight: 98.41 kg

DRUGS (1)
  1. IMPLANON [Suspect]
     Indication: CONTRACEPTION
     Dosage: 1 DF, UNK
     Route: 023
     Dates: start: 20101222

REACTIONS (2)
  - Medical device complication [Unknown]
  - No adverse event [Unknown]
